FAERS Safety Report 5420455-3 (Version None)
Quarter: 2007Q3

REPORT INFORMATION
  Report Type: 
  Country: None (occurrence: None)
  Receive Date: 20070821
  Receipt Date: 20070810
  Transmission Date: 20080115
  Serious: Yes (Hospitalization)
  Sender: FDA-Public Use
  Company Number: PHHO2007US12908

PATIENT
  Age: 47 Year
  Sex: Female
  Weight: 49 kg

DRUGS (4)
  1. ATACAND [Concomitant]
     Indication: HYPERTENSION
  2. PROVIGIL [Concomitant]
     Indication: FATIGUE
  3. TRILEPTAL [Suspect]
     Indication: PAIN
  4. FTY720 0.5MG V FTY720 1.25MG V PLACEBO [Suspect]
     Indication: MULTIPLE SCLEROSIS
     Dosage: CODE NOT BROKEN
     Route: 048
     Dates: start: 20070515, end: 20070728

REACTIONS (3)
  - CYSTITIS [None]
  - HYPONATRAEMIA [None]
  - POLLAKIURIA [None]
